FAERS Safety Report 20558033 (Version 14)
Quarter: 2024Q1

REPORT INFORMATION
  Report Type: Report from Study
  Country: US (occurrence: US)
  Receive Date: 20220307
  Receipt Date: 20240212
  Transmission Date: 20240409
  Serious: Yes (Other)
  Sender: FDA-Public Use
  Company Number: US-NOVARTISTESTPH-NVSC2022US052539

PATIENT
  Age: 39 Year
  Sex: Female

DRUGS (1)
  1. KESIMPTA [Suspect]
     Active Substance: OFATUMUMAB
     Indication: Multiple sclerosis
     Dosage: UNK
     Route: 058
     Dates: start: 20220220

REACTIONS (11)
  - Central vision loss [Recovered/Resolved]
  - Basal cell carcinoma [Unknown]
  - Multiple sclerosis relapse [Recovered/Resolved]
  - Photopsia [Unknown]
  - Influenza like illness [Recovered/Resolved]
  - Malaise [Recovered/Resolved]
  - Chills [Recovered/Resolved]
  - Anxiety [Unknown]
  - Visual impairment [Recovered/Resolved]
  - Visual field defect [Unknown]
  - Vision blurred [Unknown]

NARRATIVE: CASE EVENT DATE: 20220220
